FAERS Safety Report 10663850 (Version 1)
Quarter: 2014Q4

REPORT INFORMATION
  Report Type: Spontaneous
  Country: US (occurrence: None)
  Receive Date: 20141218
  Receipt Date: 20141218
  Transmission Date: 20150529
  Serious: Yes (Disabling)
  Sender: FDA-Public Use
  Company Number: None

PATIENT
  Age: 71 Year
  Sex: Male
  Weight: 108.86 kg

DRUGS (12)
  1. ALLOPURINOL. [Concomitant]
     Active Substance: ALLOPURINOL
  2. XARELTO ??? [Concomitant]
  3. ALEVE [Concomitant]
     Active Substance: NAPROXEN SODIUM
  4. ASPIRIN. [Concomitant]
     Active Substance: ASPIRIN
  5. LOSARTAN [Concomitant]
     Active Substance: LOSARTAN
  6. METOPROLOL [Concomitant]
     Active Substance: METOPROLOL
  7. MULTI VITAMIN [Concomitant]
     Active Substance: VITAMINS
  8. FUROSEMIDE. [Concomitant]
     Active Substance: FUROSEMIDE
  9. LEVOTHYROXINE [Concomitant]
     Active Substance: LEVOTHYROXINE
  10. OMEPRAZOLE. [Concomitant]
     Active Substance: OMEPRAZOLE
  11. CRESTOR [Suspect]
     Active Substance: ROSUVASTATIN CALCIUM
     Indication: BLOOD CHOLESTEROL
     Dosage: STRENGTH: 20 MG, 1 PER DAY, DAILY, MOUTH
     Route: 048
     Dates: start: 2013
  12. AMIODARONE [Concomitant]
     Active Substance: AMIODARONE

REACTIONS (4)
  - Pain in extremity [None]
  - Groin pain [None]
  - Abasia [None]
  - Back pain [None]

NARRATIVE: CASE EVENT DATE: 201310
